FAERS Safety Report 4589043-5 (Version None)
Quarter: 2005Q1

REPORT INFORMATION
  Report Type: 
  Country: None (occurrence: None)
  Receive Date: 20050222
  Receipt Date: 20040811
  Transmission Date: 20050727
  Serious: Yes (Hospitalization)
  Sender: FDA-Public Use
  Company Number: US-MERCK-0408USA00969

PATIENT
  Age: 47 Year
  Sex: Male
  Weight: 108 kg

DRUGS (8)
  1. VIOXX [Suspect]
     Indication: ARTHRITIS
     Route: 048
     Dates: start: 20000606, end: 20000919
  2. VIOXX [Suspect]
     Route: 048
     Dates: start: 20000919, end: 20010916
  3. VIOXX [Suspect]
     Indication: BACK INJURY
     Route: 048
     Dates: start: 20000606, end: 20000919
  4. VIOXX [Suspect]
     Route: 048
     Dates: start: 20000919, end: 20010916
  5. ZANTAC [Concomitant]
     Indication: DYSPEPSIA
     Route: 065
  6. CELEXA [Concomitant]
     Indication: ANTIDEPRESSANT THERAPY
     Route: 065
  7. ALBUTEROL [Concomitant]
     Route: 055
  8. VICODIN [Concomitant]
     Route: 048

REACTIONS (32)
  - ACUTE MYOCARDIAL INFARCTION [None]
  - ANXIETY [None]
  - ARTHRALGIA [None]
  - ASTHENIA [None]
  - ASTHMA [None]
  - BACK PAIN [None]
  - CHEST PAIN [None]
  - CORONARY ARTERY ATHEROSCLEROSIS [None]
  - COUGH [None]
  - DEPRESSION [None]
  - DUPUYTREN'S CONTRACTURE [None]
  - DYSLIPIDAEMIA [None]
  - DYSPHAGIA [None]
  - DYSPNOEA [None]
  - ERECTILE DYSFUNCTION [None]
  - FATIGUE [None]
  - HYPOAESTHESIA [None]
  - IMPULSE-CONTROL DISORDER [None]
  - PAIN IN EXTREMITY [None]
  - PREMATURE EJACULATION [None]
  - PULMONARY CONGESTION [None]
  - PURULENT DISCHARGE [None]
  - RESTLESS LEGS SYNDROME [None]
  - RHINITIS ALLERGIC [None]
  - RHONCHI [None]
  - SELF-INJURIOUS IDEATION [None]
  - SINUS DISORDER [None]
  - SLEEP APNOEA SYNDROME [None]
  - SPINAL COLUMN STENOSIS [None]
  - UPPER RESPIRATORY TRACT INFECTION [None]
  - WEIGHT INCREASED [None]
  - WHEEZING [None]
